FAERS Safety Report 14274009 (Version 21)
Quarter: 2022Q4

REPORT INFORMATION
  Report Type: Spontaneous
  Country: GB (occurrence: GB)
  Receive Date: 20171212
  Receipt Date: 20221230
  Transmission Date: 20230112
  Serious: Yes (Hospitalization, Other)
  Sender: FDA-Public Use
  Company Number: GB-AUROBINDO-AUR-APL-2017-44584

PATIENT
  Sex: Male

DRUGS (29)
  1. METRONIDAZOLE [Suspect]
     Active Substance: METRONIDAZOLE
     Indication: Product used for unknown indication
     Dosage: 400 MILLIGRAM
     Route: 065
  2. METRONIDAZOLE [Suspect]
     Active Substance: METRONIDAZOLE
     Dosage: 1 DOSAGE FORM
     Route: 065
  3. METRONIDAZOLE [Suspect]
     Active Substance: METRONIDAZOLE
     Dosage: 1200 MILLIGRAM, 3 TIMES A DAY
     Route: 065
  4. METRONIDAZOLE [Suspect]
     Active Substance: METRONIDAZOLE
     Dosage: 400 MILLIGRAM,TDS FOR 2 WEEKS
     Route: 065
  5. METRONIDAZOLE [Suspect]
     Active Substance: METRONIDAZOLE
     Dosage: 400 MILLIGRAM, 3 TIMES A DAY (400 MG TDS FOR 2 WEEKS)
     Route: 065
     Dates: start: 20161013
  6. VEDOLIZUMAB [Suspect]
     Active Substance: VEDOLIZUMAB
     Indication: Crohn^s disease
     Dosage: 120 UNK (120 UNK; THIRD DOSE)
     Route: 042
     Dates: start: 20160505
  7. VEDOLIZUMAB [Suspect]
     Active Substance: VEDOLIZUMAB
     Dosage: UNK (FOURTH DOSE)
     Route: 042
     Dates: start: 20160614
  8. VEDOLIZUMAB [Suspect]
     Active Substance: VEDOLIZUMAB
     Dosage: UNK (SECOND DOSE)
     Route: 042
     Dates: start: 20160809
  9. VEDOLIZUMAB [Suspect]
     Active Substance: VEDOLIZUMAB
     Dosage: UNK (FIRST DOSE)
     Route: 042
     Dates: start: 20161013
  10. AZATHIOPRINE [Concomitant]
     Active Substance: AZATHIOPRINE
     Indication: Product used for unknown indication
     Dosage: 50 MILLIGRAM, ONCE A DAY(50 MILLIGRAM, QD)
     Route: 065
  11. AZATHIOPRINE [Concomitant]
     Active Substance: AZATHIOPRINE
     Dosage: 50 MILLIGRAM, ONCE A DAY
     Route: 065
     Dates: start: 20161014
  12. Adcal [Concomitant]
     Indication: Product used for unknown indication
     Dosage: 50 MILLIGRAM, ONCE A DAY
     Route: 065
  13. Adcal [Concomitant]
     Dosage: 50 MILLIGRAM, ONCE A DAY (50 MILLIGRAM, QD)
     Route: 065
     Dates: start: 20161014
  14. CALCIUM CARBONATE [Concomitant]
     Active Substance: CALCIUM CARBONATE
     Indication: Product used for unknown indication
     Dosage: 50 MILLIGRAM, ONCE A DAY
     Route: 065
  15. FERROUS SULFATE [Concomitant]
     Active Substance: FERROUS SULFATE
     Indication: Product used for unknown indication
     Dosage: 5 UNK
     Route: 065
  16. FERROUS SULFATE [Concomitant]
     Active Substance: FERROUS SULFATE
     Dosage: 50 MILLIGRAM, ONCE A DAY
     Route: 065
  17. FERROUS SULFATE [Concomitant]
     Active Substance: FERROUS SULFATE
     Dosage: 5 MILLIGRAM, ONCE A DAY
     Route: 065
     Dates: start: 20161014
  18. FOLIC ACID [Concomitant]
     Active Substance: FOLIC ACID
     Indication: Product used for unknown indication
     Dosage: 5 MILLIGRAM, ONCE A DAY
     Route: 065
     Dates: start: 20161014
  19. INFLIXIMAB [Concomitant]
     Active Substance: INFLIXIMAB
     Indication: Product used for unknown indication
     Dosage: 5 MILLIGRAM, ONCE A DAY
     Route: 065
     Dates: start: 20161014
  20. PREDNISOLONE [Concomitant]
     Active Substance: PREDNISOLONE
     Indication: Product used for unknown indication
     Dosage: 5 MILLIGRAM, ONCE A DAY
     Route: 042
  21. PREDNISOLONE [Concomitant]
     Active Substance: PREDNISOLONE
     Dosage: 5 MILLIGRAM (40MG DAILY REDUCING TO 5MG EVERY WEEK)
     Route: 042
  22. PREDNISOLONE [Concomitant]
     Active Substance: PREDNISOLONE
     Dosage: 40 MILLIGRAM, ONCE A DAY (40MG DAILY REDUCING TO 5MG EVERY WEEK)
     Route: 065
     Dates: start: 20161014
  23. PREDNISOLONE [Concomitant]
     Active Substance: PREDNISOLONE
     Dosage: 50 MILLIGRAM, ONCE A DAY
     Route: 065
  24. PREDNISOLONE [Concomitant]
     Active Substance: PREDNISOLONE
     Dosage: 5 MILLIGRAM, EVERY WEEK
     Route: 065
  25. PREDNISOLONE [Concomitant]
     Active Substance: PREDNISOLONE
     Dosage: 5 MILLIGRAM, ONCE A DAY
     Route: 065
     Dates: start: 20161014
  26. SULFASALAZINE [Concomitant]
     Active Substance: SULFASALAZINE
     Indication: Product used for unknown indication
     Dosage: 50 MILLIGRAM PER DAY
     Route: 065
  27. SULFASALAZINE [Concomitant]
     Active Substance: SULFASALAZINE
     Dosage: 50 MILLIGRAM, ONCE A DAY
     Route: 065
     Dates: start: 20161014
  28. CARBAZOCHROME SODIUM SULFONATE [Concomitant]
     Active Substance: CARBAZOCHROME SODIUM SULFONATE
     Indication: Product used for unknown indication
     Dosage: UNK
     Route: 065
  29. USTEKINUMAB [Concomitant]
     Active Substance: USTEKINUMAB
     Indication: Product used for unknown indication
     Dosage: UNK
     Route: 065
     Dates: start: 20170720

REACTIONS (10)
  - Arthralgia [Not Recovered/Not Resolved]
  - Myalgia [Not Recovered/Not Resolved]
  - Tenderness [Recovered/Resolved]
  - Fistula discharge [Recovered/Resolved]
  - Tonsillitis [Unknown]
  - Sepsis [Recovered/Resolved with Sequelae]
  - Fistula [Recovered/Resolved]
  - Infusion related reaction [Recovered/Resolved]
  - Abscess [Recovered/Resolved]
  - Anal fistula [Recovered/Resolved]

NARRATIVE: CASE EVENT DATE: 20160614
